FAERS Safety Report 14145414 (Version 1)
Quarter: 2017Q4

REPORT INFORMATION
  Report Type: Spontaneous
  Country: GB (occurrence: GB)
  Receive Date: 20171031
  Receipt Date: 20171031
  Transmission Date: 20180321
  Serious: Yes (Hospitalization, Other)
  Sender: FDA-Public Use
  Company Number: GB-PFIZER INC-2017466605

PATIENT
  Sex: Male

DRUGS (2)
  1. ASPIRIN /00002701/ [Suspect]
     Active Substance: ASPIRIN
     Indication: ARTHRITIS
     Dosage: 600 MG, 2X/DAY
     Route: 048
  2. IBUPROFEN. [Suspect]
     Active Substance: IBUPROFEN
     Indication: ARTHRITIS
     Dosage: UNK
     Route: 048

REACTIONS (3)
  - Melaena [Unknown]
  - Upper gastrointestinal haemorrhage [Recovering/Resolving]
  - Gastrointestinal ulcer [Unknown]

NARRATIVE: CASE EVENT DATE: 20171009
